FAERS Safety Report 17214262 (Version 1)
Quarter: 2019Q4

REPORT INFORMATION
  Report Type: Spontaneous
  Country: IT (occurrence: IT)
  Receive Date: 20191230
  Receipt Date: 20191230
  Transmission Date: 20200122
  Serious: Yes (Other)
  Sender: FDA-Public Use
  Company Number: IT-MYLANLABS-2019M1127139

PATIENT
  Sex: Male
  Weight: 3.92 kg

DRUGS (2)
  1. NITRIC OXIDE. [Suspect]
     Active Substance: NITRIC OXIDE
     Indication: PULMONARY HYPERTENSION
     Dosage: UNK (ON HIGH FREQUENCY OSCILLATION (HFO))
     Route: 064
  2. ALPROSTADIL. [Suspect]
     Active Substance: ALPROSTADIL
     Indication: DUCTUS ARTERIOSUS PREMATURE CLOSURE
     Dosage: UNK (ON HIGH FREQUENCY OSCILLATION (HFO))
     Route: 064

REACTIONS (2)
  - Foetal exposure during pregnancy [Recovered/Resolved]
  - Therapeutic product effect incomplete [Recovering/Resolving]
